FAERS Safety Report 14707711 (Version 1)
Quarter: 2018Q2

REPORT INFORMATION
  Report Type: Spontaneous
  Country: US (occurrence: US)
  Receive Date: 20180403
  Receipt Date: 20180403
  Transmission Date: 20180711
  Serious: No
  Sender: FDA-Public Use
  Company Number: US-HORIZON-DUE-0082-2018

PATIENT
  Age: 54 Year
  Sex: Female

DRUGS (1)
  1. DUEXIS [Suspect]
     Active Substance: FAMOTIDINE\IBUPROFEN
     Indication: RHEUMATOID ARTHRITIS
     Dosage: 1 TABELT TID

REACTIONS (3)
  - Insurance issue [Unknown]
  - Pain [Unknown]
  - Off label use [Unknown]
